FAERS Safety Report 21675372 (Version 1)
Quarter: 2022Q4

REPORT INFORMATION
  Report Type: Spontaneous
  Country: US (occurrence: US)
  Receive Date: 20221202
  Receipt Date: 20221202
  Transmission Date: 20230113
  Serious: No
  Sender: FDA-Public Use
  Company Number: US-drreddys-SPO/USA/22/0157344

PATIENT
  Age: 30 Year

DRUGS (1)
  1. ACCUTANE [Suspect]
     Active Substance: ISOTRETINOIN
     Indication: Acne
     Dosage: RMA ISSUE DATE: 04/AUGUST/2022 02:29:30 PM, 21/SEPTEMBER/2022 09:48:57 AM, 17/OCTOBER/2022 10:20:53

REACTIONS (1)
  - Treatment noncompliance [Unknown]
